FAERS Safety Report 8613260-8 (Version None)
Quarter: 2012Q3

REPORT INFORMATION
  Report Type: 
  Country: None (occurrence: None)
  Receive Date: 20120822
  Receipt Date: 20120802
  Transmission Date: 20120928
  Serious: Yes (Hospitalization)
  Sender: FDA-Public Use
  Company Number: DE-009507513-1208DEU002261

PATIENT

DRUGS (16)
  1. SUGAMMADEX SODIUM [Suspect]
     Indication: NEUROMUSCULAR BLOCKADE
     Dosage: UNK
     Route: 042
     Dates: start: 20120621, end: 20120621
  2. SIMVASTATIN [Suspect]
     Indication: ANAESTHESIA
  3. SUGAMMADEX SODIUM [Suspect]
     Indication: ANAESTHESIA
  4. RAMIPRIL [Concomitant]
     Dosage: 5 MG, QD
     Route: 048
  5. DICLOFENAC SODIUM [Concomitant]
     Dosage: 75 MG, PRN
     Route: 048
  6. SIMVASTATIN [Suspect]
     Indication: ANAESTHESIA
  7. OMEPRAZOLE [Concomitant]
     Dosage: 20 MG, PRN
     Route: 048
  8. BLINDED NEOSTIGMINE [Suspect]
     Indication: ANAESTHESIA
  9. SIMVASTATIN [Suspect]
     Indication: NEUROMUSCULAR BLOCKADE
     Dosage: UNK
     Route: 042
     Dates: start: 20120621, end: 20120621
  10. PLACEBO [Suspect]
     Indication: ANAESTHESIA
  11. MARCUMAR [Concomitant]
     Dosage: 1 DF, PRN
     Route: 048
     Dates: end: 20120614
  12. BLINDED NEOSTIGMINE [Suspect]
     Indication: NEUROMUSCULAR BLOCKADE
     Dosage: UNK
     Route: 042
     Dates: start: 20120621, end: 20120621
  13. PLACEBO [Suspect]
     Indication: NEUROMUSCULAR BLOCKADE
     Dosage: UNK
     Route: 042
     Dates: start: 20120621, end: 20120621
  14. SIMVASTATIN [Suspect]
     Indication: NEUROMUSCULAR BLOCKADE
     Dosage: UNK
     Route: 042
     Dates: start: 20120621, end: 20120621
  15. HYDROCHLOROTHIAZIDE [Concomitant]
     Dosage: 25 MG, QD
     Route: 048
  16. LORATADINE [Concomitant]
     Dosage: 10 MG, PRN
     Route: 048

REACTIONS (1)
  - POST PROCEDURAL HAEMORRHAGE [None]
